FAERS Safety Report 12185897 (Version 1)
Quarter: 2016Q1

REPORT INFORMATION
  Report Type: Spontaneous
  Country: GB (occurrence: GB)
  Receive Date: 20160317
  Receipt Date: 20160317
  Transmission Date: 20160526
  Serious: No
  Sender: FDA-Public Use
  Company Number: GB-LUPIN PHARMACEUTICALS INC.-2015-01523

PATIENT
  Sex: Female

DRUGS (2)
  1. SERTRALINE 50MG TABLETS [Suspect]
     Active Substance: SERTRALINE HYDROCHLORIDE
     Indication: ANXIETY
     Dosage: QUARTER OF 50 MG TABLET
     Route: 048
  2. SERTRALINE 50MG TABLETS [Suspect]
     Active Substance: SERTRALINE HYDROCHLORIDE
     Indication: OBSESSIVE-COMPULSIVE DISORDER
     Dosage: HALF OF 50 MG TABLET
     Route: 048

REACTIONS (2)
  - Feeling abnormal [Recovered/Resolved]
  - Wrong technique in product usage process [Unknown]
